FAERS Safety Report 8796979 (Version 1)
Quarter: 2012Q4

REPORT INFORMATION
  Report Type: 
  Country: US (occurrence: US)
  Receive Date: 20120919
  Receipt Date: 20120919
  Transmission Date: 20130627
  Serious: Yes (Death)
  Sender: FDA-Public Use
  Company Number: US-GLAXOSMITHKLINE-A0750162A

PATIENT
  Age: 74 Year
  Sex: Female
  Weight: 65.9 kg

DRUGS (8)
  1. AVANDIA [Suspect]
     Indication: DIABETES MELLITUS
     Dosage: 2MG Per day
     Route: 048
     Dates: start: 200510, end: 200611
  2. AVANDIA [Suspect]
     Indication: DIABETES MELLITUS
     Dosage: 4MG Per day
     Route: 048
     Dates: start: 200008, end: 200010
  3. GLUCOPHAGE [Concomitant]
  4. METFORMIN [Concomitant]
  5. HUMULIN [Concomitant]
  6. GLYBURIDE [Concomitant]
  7. GLIPIZIDE [Concomitant]
  8. LOTREL [Concomitant]

REACTIONS (2)
  - Cardiac failure congestive [Unknown]
  - Coronary artery disease [Fatal]
